FAERS Safety Report 9434814 (Version 2)
Quarter: 2013Q4

REPORT INFORMATION
  Report Type: Spontaneous
  Country: GB (occurrence: GB)
  Receive Date: 20130801
  Receipt Date: 20131115
  Transmission Date: 20140711
  Serious: Yes (Disabling)
  Sender: FDA-Public Use
  Company Number: GB-SANOFI-AVENTIS-2013SA076878

PATIENT
  Age: 77 Year
  Sex: Male
  Weight: 105 kg

DRUGS (2)
  1. DRONEDARONE [Suspect]
     Indication: ATRIAL FIBRILLATION
     Dosage: 20000 CUMULATIVE DOSE
     Route: 048
     Dates: start: 20130523, end: 20130621
  2. LOSARTAN [Concomitant]
     Indication: HYPERTENSION
     Dosage: ONGOING, REGULAR MEDICATION
     Route: 065
     Dates: start: 201006

REACTIONS (2)
  - Peripheral sensory neuropathy [Recovering/Resolving]
  - Ataxia [Recovering/Resolving]
